FAERS Safety Report 9967759 (Version 1)
Quarter: 2014Q1

REPORT INFORMATION
  Report Type: Report from Study
  Country: US (occurrence: US)
  Receive Date: 20140306
  Receipt Date: 20140306
  Transmission Date: 20141002
  Serious: No
  Sender: FDA-Public Use
  Company Number: US-ABBVIE-13P-163-1144838-00

PATIENT
  Age: 13 Year
  Sex: Female

DRUGS (1)
  1. HUMIRA [Suspect]
     Indication: COLITIS ULCERATIVE
     Route: 058
     Dates: start: 20130903

REACTIONS (5)
  - Dysgeusia [Unknown]
  - Diarrhoea haemorrhagic [Unknown]
  - Decreased appetite [Unknown]
  - Abdominal pain upper [Unknown]
  - Cough [Unknown]
